FAERS Safety Report 5889679-5 (Version None)
Quarter: 2008Q3

REPORT INFORMATION
  Report Type: 
  Country: None (occurrence: None)
  Receive Date: 20080919
  Receipt Date: 20080910
  Transmission Date: 20090109
  Serious: Yes (Other)
  Sender: FDA-Public Use
  Company Number: US-JNJFOC-20080204052

PATIENT
  Sex: Female
  Weight: 80.74 kg

DRUGS (7)
  1. FENTANYL TRANSDERMAL SYSTEM [Suspect]
     Route: 062
  2. FENTANYL TRANSDERMAL SYSTEM [Suspect]
     Route: 062
  3. FENTANYL TRANSDERMAL SYSTEM [Suspect]
     Route: 062
  4. FENTANYL TRANSDERMAL SYSTEM [Suspect]
     Indication: INTERVERTEBRAL DISC PROTRUSION
     Route: 062
  5. ZYRTEC-D 12 HOUR [Concomitant]
     Indication: ASTHMA
     Route: 048
  6. ALBUTEROL [Concomitant]
     Indication: ASTHMA
     Dosage: ONE PUFF AS NEEDED
     Route: 055
  7. VICODIN [Concomitant]
     Indication: PAIN
     Dosage: 1-2 TABLETS DAILY AS REQUIRED
     Route: 048

REACTIONS (9)
  - BALANCE DISORDER [None]
  - DEVICE LEAKAGE [None]
  - DIZZINESS [None]
  - FATIGUE [None]
  - HYPOTENSION [None]
  - INCORRECT DRUG ADMINISTRATION DURATION [None]
  - MUSCLE SPASMS [None]
  - NAUSEA [None]
  - PAIN [None]
